FAERS Safety Report 13426025 (Version 1)
Quarter: 2017Q2

REPORT INFORMATION
  Report Type: Spontaneous
  Country: US (occurrence: US)
  Receive Date: 20170411
  Receipt Date: 20170411
  Transmission Date: 20170830
  Serious: No
  Sender: FDA-Public Use
  Company Number: US-JNJFOC-20170117103

PATIENT
  Age: 67 Year
  Sex: Female
  Weight: 72.58 kg

DRUGS (7)
  1. LOSARTAN. [Concomitant]
     Active Substance: LOSARTAN
     Route: 065
  2. SIMPONI [Suspect]
     Active Substance: GOLIMUMAB
     Indication: RHEUMATOID ARTHRITIS
     Route: 058
     Dates: start: 2010
  3. NEURONTIN [Concomitant]
     Active Substance: GABAPENTIN
     Route: 065
  4. CYCLOBENZAPRINE. [Concomitant]
     Active Substance: CYCLOBENZAPRINE
     Dosage: AS NEEDED
     Route: 065
  5. FUROSEMIDE. [Concomitant]
     Active Substance: FUROSEMIDE
     Dosage: AS NEEDED
     Route: 065
  6. FOLIC ACID. [Concomitant]
     Active Substance: FOLIC ACID
     Dosage: ONE DOSE/ONCE DAILY
     Route: 065
  7. SULFASALAZINE. [Concomitant]
     Active Substance: SULFASALAZINE
     Dosage: TABLETS/TWICE DAILY
     Route: 065

REACTIONS (5)
  - Injection site haemorrhage [Unknown]
  - Accidental exposure to product [Recovered/Resolved]
  - Drug dose omission [Unknown]
  - Administration site pain [Not Recovered/Not Resolved]
  - Needle issue [Unknown]

NARRATIVE: CASE EVENT DATE: 2010
